FAERS Safety Report 4565268-X (Version None)
Quarter: 2005Q1

REPORT INFORMATION
  Report Type: 
  Country: None (occurrence: None)
  Receive Date: 20050131
  Receipt Date: 20050124
  Transmission Date: 20050727
  Serious: Yes (Death, Hospitalization)
  Sender: FDA-Public Use
  Company Number: DE-ROCHE-393382

PATIENT
  Age: 61 Year
  Sex: Female

DRUGS (2)
  1. CAPECITABINE [Suspect]
     Indication: GASTRIC CANCER
     Dosage: DOSAGE REGIMEN: INTERMITTENT.
     Route: 048
     Dates: start: 20041119, end: 20041227
  2. PLATINEX [Suspect]
     Indication: GASTRIC CANCER
     Dosage: DOSAGE REGIMEN: INTERMITTENT.
     Route: 042
     Dates: start: 20041119, end: 20041227

REACTIONS (7)
  - ANOREXIA [None]
  - BLOOD GLUCOSE INCREASED [None]
  - DEHYDRATION [None]
  - GASTRIC CANCER [None]
  - MULTI-ORGAN FAILURE [None]
  - NAUSEA [None]
  - VOMITING [None]
